FAERS Safety Report 13721367 (Version 1)
Quarter: 2017Q3

REPORT INFORMATION
  Report Type: Spontaneous
  Country: US (occurrence: US)
  Receive Date: 20170705
  Receipt Date: 20170705
  Transmission Date: 20171127
  Serious: No
  Sender: FDA-Public Use
  Company Number: None

PATIENT
  Age: 63 Year
  Sex: Female
  Weight: 72 kg

DRUGS (9)
  1. EVENING PRIMROSE OIL [Concomitant]
     Active Substance: EVENING PRIMROSE OIL
  2. METHYLPHENIDATE XR [Suspect]
     Active Substance: METHYLPHENIDATE
     Indication: SOMNOLENCE
     Route: 048
     Dates: start: 20170504, end: 20170519
  3. HCTZ [Concomitant]
     Active Substance: HYDROCHLOROTHIAZIDE
  4. OMEGA 3 [Concomitant]
     Active Substance: OMEGA-3 FATTY ACIDS
  5. SYNTHROID [Concomitant]
     Active Substance: LEVOTHYROXINE SODIUM
  6. CONCERTA [Concomitant]
     Active Substance: METHYLPHENIDATE HYDROCHLORIDE
  7. MULTIVITAMIN [Concomitant]
     Active Substance: VITAMINS
  8. VITAMIN ^D^ [Concomitant]
  9. METHYLPHENIDATE XR [Suspect]
     Active Substance: METHYLPHENIDATE
     Indication: SLEEP APNOEA SYNDROME
     Route: 048
     Dates: start: 20170504, end: 20170519

REACTIONS (7)
  - Fatigue [None]
  - Product substitution issue [None]
  - Nausea [None]
  - Dizziness [None]
  - Headache [None]
  - Confusional state [None]
  - Muscle tightness [None]

NARRATIVE: CASE EVENT DATE: 20170515
